FAERS Safety Report 6594153-7 (Version None)
Quarter: 2010Q1

REPORT INFORMATION
  Report Type: 
  Country: None (occurrence: None)
  Receive Date: 20100222
  Receipt Date: 20100211
  Transmission Date: 20100710
  Serious: Yes (Hospitalization, Other)
  Sender: FDA-Public Use
  Company Number: US-JNJFOC-20100206464

PATIENT
  Sex: Female
  Weight: 81.65 kg

DRUGS (6)
  1. REMICADE [Suspect]
     Indication: CROHN'S DISEASE
     Route: 042
     Dates: start: 20070101, end: 20090101
  2. CARBAMAZEPINE [Concomitant]
     Indication: CONVULSION
  3. LEVOXYL [Concomitant]
     Indication: THYROID DISORDER
  4. TRIAMTERENE [Concomitant]
     Indication: BLOOD PRESSURE
  5. QUINAPRIL [Concomitant]
     Indication: BLOOD PRESSURE
  6. LYRICA [Concomitant]
     Indication: SCIATICA

REACTIONS (5)
  - ANAEMIA [None]
  - CROHN'S DISEASE [None]
  - DIZZINESS [None]
  - DRUG EFFECT DECREASED [None]
  - HEAD INJURY [None]
